FAERS Safety Report 16891247 (Version 1)
Quarter: 2019Q4

REPORT INFORMATION
  Report Type: Spontaneous
  Country: US (occurrence: CH)
  Receive Date: 20191007
  Receipt Date: 20191007
  Transmission Date: 20200122
  Serious: Yes (Other)
  Sender: FDA-Public Use
  Company Number: CH-TEVA-2019-CH-1118745

PATIENT
  Age: 54 Year
  Sex: Male

DRUGS (3)
  1. POSACONAZOLE [Interacting]
     Active Substance: POSACONAZOLE
     Indication: COCCIDIOIDOMYCOSIS
     Dosage: 300 MILLIGRAM DAILY;
     Route: 048
  2. FLUCONAZOLE. [Suspect]
     Active Substance: FLUCONAZOLE
     Indication: COCCIDIOIDOMYCOSIS
     Dosage: 600 MILLIGRAM DAILY;
     Route: 065
  3. PANTOPRAZOLE [Interacting]
     Active Substance: PANTOPRAZOLE
     Indication: ANTACID THERAPY
     Route: 065

REACTIONS (6)
  - Xerosis [Unknown]
  - Cheilitis [Unknown]
  - Hypokalaemia [Recovered/Resolved]
  - Nausea [Unknown]
  - Drug interaction [Unknown]
  - Hypertension [Recovered/Resolved]
